FAERS Safety Report 7716910-3 (Version None)
Quarter: 2011Q3

REPORT INFORMATION
  Report Type: 
  Country: None (occurrence: None)
  Receive Date: 20110829
  Receipt Date: 20110816
  Transmission Date: 20111222
  Serious: Yes (Hospitalization)
  Sender: FDA-Public Use
  Company Number: US-UCBSA-037762

PATIENT
  Sex: Female

DRUGS (1)
  1. CIMZIA [Suspect]
     Indication: CROHN'S DISEASE
     Dosage: INDUCTION DOSE ;  DATE UNKNOWN.
     Route: 058
     Dates: start: 20110711, end: 20110816

REACTIONS (2)
  - LUNG INFECTION [None]
  - CROHN'S DISEASE [None]
